FAERS Safety Report 7477298-9 (Version None)
Quarter: 2011Q2

REPORT INFORMATION
  Report Type: 
  Country: None (occurrence: None)
  Receive Date: 20110513
  Receipt Date: 20110503
  Transmission Date: 20111010
  Serious: No
  Sender: FDA-Public Use
  Company Number: US-BIOGENIDEC-2010BI010870

PATIENT
  Sex: Female

DRUGS (1)
  1. TYSABRI [Suspect]
     Indication: MULTIPLE SCLEROSIS
     Route: 042
     Dates: start: 20070911

REACTIONS (8)
  - SOMNOLENCE [None]
  - MULTIPLE ALLERGIES [None]
  - MUSCLE SPASTICITY [None]
  - FATIGUE [None]
  - HEMIPARESIS [None]
  - MUSCLE SPASMS [None]
  - ASTHENIA [None]
  - MUSCULOSKELETAL STIFFNESS [None]
